FAERS Safety Report 8211523-1 (Version None)
Quarter: 2012Q1

REPORT INFORMATION
  Report Type: 
  Country: None (occurrence: None)
  Receive Date: 20120315
  Receipt Date: 20120313
  Transmission Date: 20120608
  Serious: Yes (Other)
  Sender: FDA-Public Use
  Company Number: DE-BAYER-2012-024636

PATIENT
  Sex: Female

DRUGS (5)
  1. THYROID [Concomitant]
  2. CIPROFLOXACIN [Suspect]
     Indication: PROPHYLAXIS URINARY TRACT INFECTION
     Dosage: UNK
     Dates: start: 20111001
  3. INDOMETHACIN [Concomitant]
  4. NAPROXEN [Concomitant]
  5. PREGABALIN [Concomitant]

REACTIONS (3)
  - NAIL ATROPHY [None]
  - ONYCHOCLASIS [None]
  - SKIN HAEMORRHAGE [None]
